FAERS Safety Report 13023937 (Version 1)
Quarter: 2016Q4

REPORT INFORMATION
  Report Type: Spontaneous
  Country: DE (occurrence: DE)
  Receive Date: 20161213
  Receipt Date: 20161213
  Transmission Date: 20170207
  Serious: Yes (Congenital Anomaly)
  Sender: FDA-Public Use
  Company Number: DE-TEVA-716810GER

PATIENT
  Age: 3 Year
  Sex: Female

DRUGS (1)
  1. COTRIM FORTE-RATIOPHARM 960 MG TABLETTEN [Suspect]
     Active Substance: SULFAMETHOXAZOLE\TRIMETHOPRIM
     Dosage: 1 DF CONTAINS 800 MG SULFAMETHOXAZOLE AND 160 MG TRIMETHOPRIM
     Route: 064

REACTIONS (2)
  - Foetal exposure during pregnancy [Not Recovered/Not Resolved]
  - Bloch-Sulzberger syndrome [Not Recovered/Not Resolved]
